FAERS Safety Report 19485373 (Version 1)
Quarter: 2021Q3

REPORT INFORMATION
  Report Type: Spontaneous
  Country: CN (occurrence: CN)
  Receive Date: 20210701
  Receipt Date: 20210701
  Transmission Date: 20211014
  Serious: Yes (Other)
  Sender: FDA-Public Use
  Company Number: CN-ROCHE-2860169

PATIENT
  Age: 56 Year
  Sex: Female

DRUGS (4)
  1. PERTUZUMAB. [Suspect]
     Active Substance: PERTUZUMAB
     Indication: INVASIVE BREAST CARCINOMA
     Dosage: ON 18/MAR/2021, 08/APR/2021, 29/APR/2021, 20/MAY/2021, THE PATIENT WAS RECEIVED 4 CYCLES OF TCBHP RE
     Route: 065
     Dates: start: 20210318
  2. HERCEPTIN [Suspect]
     Active Substance: TRASTUZUMAB
     Indication: INVASIVE BREAST CARCINOMA
     Dosage: ON 18/MAR/2021, 08/APR/2021, 29/APR/2021, 20/MAY/2021, THE PATIENT WAS RECEIVED 4 CYCLES OF TCBHP RE
     Route: 065
     Dates: start: 20210318
  3. DOCETAXEL. [Concomitant]
     Active Substance: DOCETAXEL
     Indication: INVASIVE BREAST CARCINOMA
     Dosage: ON 18/MAR/2021, 08/APR/2021, 29/APR/2021, 20/MAY/2021, THE PATIENT WAS RECEIVED 4 CYCLES OF TCBHP RE
     Dates: start: 20210318
  4. CARBOPLATIN. [Concomitant]
     Active Substance: CARBOPLATIN
     Indication: INVASIVE BREAST CARCINOMA
     Dosage: ON 18/MAR/2021, 08/APR/2021, 29/APR/2021, 20/MAY/2021, THE PATIENT WAS RECEIVED 4 CYCLES OF TCBHP RE
     Dates: start: 20210318

REACTIONS (1)
  - Platelet count decreased [Unknown]

NARRATIVE: CASE EVENT DATE: 20210608
